FAERS Safety Report 21679015 (Version 1)
Quarter: 2022Q4

REPORT INFORMATION
  Report Type: Spontaneous
  Country: US (occurrence: US)
  Receive Date: 20221204
  Receipt Date: 20221204
  Transmission Date: 20230113
  Serious: No
  Sender: FDA-Public Use
  Company Number: US-RECORDATI-2022000075

PATIENT

DRUGS (15)
  1. SIGNIFOR [Suspect]
     Active Substance: PASIREOTIDE DIASPARTATE
     Indication: Hypoglycaemia
     Dosage: 0.3 MILLIGRAM, BID
     Route: 058
     Dates: start: 20211217
  2. MIRTAZAPINE [Concomitant]
     Active Substance: MIRTAZAPINE
     Indication: Sleep disorder
     Dosage: 45 MILLIGRAM
  3. PLAQUENIL [Concomitant]
     Active Substance: HYDROXYCHLOROQUINE SULFATE
     Indication: Sleep disorder
     Dosage: 400 MILLIGRAM
  4. ABILIFY [Concomitant]
     Active Substance: ARIPIPRAZOLE
     Indication: Bipolar disorder
     Dosage: 5 MILLIGRAM
  5. MEMANTINE [Concomitant]
     Active Substance: MEMANTINE
     Indication: Amnesia
     Dosage: 10 MILLIGRAM
  6. CALCITRIOL [Concomitant]
     Active Substance: CALCITRIOL
     Indication: Hypovitaminosis
     Dosage: 0.5 MICROGRAM
  7. KEPPRA [Concomitant]
     Active Substance: LEVETIRACETAM
     Indication: Bipolar disorder
     Dosage: 1000 MILLIGRAM
  8. GABAPENTIN [Concomitant]
     Active Substance: GABAPENTIN
     Indication: Pain
     Dosage: 300 MILLIGRAM
  9. DICLOFENAC [Concomitant]
     Active Substance: DICLOFENAC
     Indication: Pain
     Dosage: 50 (UNITS UNSPECIFIED)
  10. LEVOTHYROXINE [Concomitant]
     Active Substance: LEVOTHYROXINE
     Indication: Hypothyroidism
     Dosage: 112 MICROGRAM
  11. BUPROPION [Concomitant]
     Active Substance: BUPROPION
     Indication: Depression
     Dosage: 300 MILLIGRAM
  12. MOVANTIK [Concomitant]
     Active Substance: NALOXEGOL OXALATE
     Indication: Constipation
     Dosage: 25 (UNITS UNSPECIFIED)
  13. NORCO [Concomitant]
     Active Substance: ACETAMINOPHEN\HYDROCODONE BITARTRATE
     Indication: Pain
     Dosage: 10/325 (UNITS UNSPECIFIED)
  14. FORTEO [Concomitant]
     Active Substance: TERIPARATIDE
     Indication: Osteoporosis
     Dosage: 620 MICROGRAM
  15. AIMOVIG [Concomitant]
     Active Substance: ERENUMAB-AOOE
     Indication: Product used for unknown indication
     Dosage: UNK UNK, QM
     Route: 058

REACTIONS (3)
  - Injection site erythema [Not Recovered/Not Resolved]
  - Injection site pruritus [Not Recovered/Not Resolved]
  - Off label use [Recovered/Resolved]

NARRATIVE: CASE EVENT DATE: 20211217
